FAERS Safety Report 24648505 (Version 1)
Quarter: 2024Q4

REPORT INFORMATION
  Report Type: Spontaneous
  Country: US (occurrence: US)
  Receive Date: 20241121
  Receipt Date: 20241121
  Transmission Date: 20250115
  Serious: No
  Sender: LUNDBECK
  Company Number: US-LUNDBECK-DKLU4005950

PATIENT

DRUGS (2)
  1. NORTHERA [Suspect]
     Active Substance: DROXIDOPA
     Indication: Orthostatic hypotension
     Dosage: 100 MILLIGRAM
     Route: 048
     Dates: start: 202303
  2. NORTHERA [Suspect]
     Active Substance: DROXIDOPA
     Indication: Parkinson^s disease

REACTIONS (3)
  - Hyperhidrosis [Unknown]
  - Anxiety [Unknown]
  - Blood glucose decreased [Unknown]

NARRATIVE: CASE EVENT DATE: 20240701
